FAERS Safety Report 10425050 (Version 4)
Quarter: 2014Q4

REPORT INFORMATION
  Report Type: Spontaneous
  Country: US (occurrence: US)
  Receive Date: 20140902
  Receipt Date: 20141105
  Transmission Date: 20150528
  Serious: Yes (Other)
  Sender: FDA-Public Use
  Company Number: US-GLAXOSMITHKLINE-A1086531A

PATIENT
  Sex: Female

DRUGS (12)
  1. BENADRYL [Concomitant]
     Active Substance: DIPHENHYDRAMINE HYDROCHLORIDE
  2. ATOVAQUONE. [Suspect]
     Active Substance: ATOVAQUONE
     Indication: LYME DISEASE
     Route: 065
     Dates: start: 2013
  3. MAGNESIUM [Concomitant]
     Active Substance: MAGNESIUM
  4. MEPRON [Suspect]
     Active Substance: ATOVAQUONE
     Indication: BABESIOSIS
     Dosage: 360 MG, UNKNOWN DOSING (MOST RECENTLY 1 ML TWICE A DAY)
     Route: 048
     Dates: start: 2009, end: 201405
  5. ANTIBIOTICS [Concomitant]
     Active Substance: UNSPECIFIED INGREDIENT
  6. UNKNOWN MEDICATION [Concomitant]
     Active Substance: UNSPECIFIED INGREDIENT
  7. CALCIUM [Concomitant]
     Active Substance: CALCIUM
  8. MEPRON [Suspect]
     Active Substance: ATOVAQUONE
     Indication: BABESIOSIS
     Dosage: 1 TEASPOON ONCE A DAY.
     Route: 048
     Dates: start: 2006
  9. EPINEPHRINE. [Concomitant]
     Active Substance: EPINEPHRINE
  10. VITAMINS [Concomitant]
     Active Substance: VITAMINS
  11. ANTI-VIRAL MEDICATION [Concomitant]
     Active Substance: UNSPECIFIED INGREDIENT
  12. IVIG [Concomitant]
     Active Substance: HUMAN IMMUNOGLOBULIN G

REACTIONS (22)
  - Urticaria [Unknown]
  - Hospitalisation [Unknown]
  - Malaria [Not Recovered/Not Resolved]
  - Blister [Not Recovered/Not Resolved]
  - Red blood cell count decreased [Not Recovered/Not Resolved]
  - Fracture [Not Recovered/Not Resolved]
  - Pneumonia [Unknown]
  - Malaise [Unknown]
  - Drug ineffective [Recovered/Resolved]
  - Infection [Unknown]
  - Heart rate irregular [Unknown]
  - White blood cell count abnormal [Not Recovered/Not Resolved]
  - Blood count abnormal [Unknown]
  - Pyrexia [Not Recovered/Not Resolved]
  - Hyperhidrosis [Not Recovered/Not Resolved]
  - Influenza like illness [Unknown]
  - Chills [Not Recovered/Not Resolved]
  - Osteoporosis [Not Recovered/Not Resolved]
  - Asthenia [Unknown]
  - Meningitis [Unknown]
  - Weight decreased [Not Recovered/Not Resolved]
  - Vomiting [Not Recovered/Not Resolved]

NARRATIVE: CASE EVENT DATE: 2006
